FAERS Safety Report 5197484-0 (Version None)
Quarter: 2006Q4

REPORT INFORMATION
  Report Type: 
  Country: None (occurrence: None)
  Receive Date: 20061228
  Receipt Date: 20061221
  Transmission Date: 20070319
  Serious: Yes (Hospitalization)
  Sender: FDA-Public Use
  Company Number: HQWYE046226DEC06

PATIENT
  Age: 72 Year
  Sex: Female

DRUGS (1)
  1. MYLOTARG [Suspect]
     Indication: ACUTE MYELOID LEUKAEMIA
     Dosage: 13 MG/KG 1X PER 1 DAY
     Route: 041
     Dates: start: 20061207, end: 20061207

REACTIONS (1)
  - INTERSTITIAL LUNG DISEASE [None]
